FAERS Safety Report 23151807 (Version 1)
Quarter: 2023Q4

REPORT INFORMATION
  Report Type: Other
  Country: US (occurrence: None)
  Receive Date: 20231107
  Receipt Date: 20231107
  Transmission Date: 20240110
  Serious: Yes (Hospitalization)
  Sender: FDA-Public Use
  Company Number: US-ROCHE-3449346

PATIENT
  Sex: Female
  Weight: 38.59 kg

DRUGS (5)
  1. OCREVUS [Suspect]
     Active Substance: OCRELIZUMAB
     Indication: Primary progressive multiple sclerosis
     Route: 042
     Dates: start: 202306
  2. FLONASE [Concomitant]
     Active Substance: FLUTICASONE PROPIONATE
  3. TIZANIDINE [Concomitant]
     Active Substance: TIZANIDINE
  4. GABAPENTIN [Concomitant]
     Active Substance: GABAPENTIN
  5. OXYCODONE [Concomitant]
     Active Substance: OXYCODONE

REACTIONS (13)
  - Cerebrovascular accident [Unknown]
  - Muscular weakness [Not Recovered/Not Resolved]
  - Head injury [Recovered/Resolved]
  - Headache [Not Recovered/Not Resolved]
  - Contusion [Not Recovered/Not Resolved]
  - Tenderness [Not Recovered/Not Resolved]
  - Pain [Not Recovered/Not Resolved]
  - Fall [Unknown]
  - Facial paralysis [Not Recovered/Not Resolved]
  - Thrombosis [Recovered/Resolved]
  - Hypoaesthesia [Not Recovered/Not Resolved]
  - Balance disorder [Not Recovered/Not Resolved]
  - COVID-19 [Not Recovered/Not Resolved]

NARRATIVE: CASE EVENT DATE: 20231001
